FAERS Safety Report 9624435 (Version 6)
Quarter: 2021Q4

REPORT INFORMATION
  Report Type: Spontaneous
  Country: US (occurrence: US)
  Receive Date: 20131015
  Receipt Date: 20211014
  Transmission Date: 20220304
  Serious: Yes (Other)
  Sender: FDA-Public Use
  Company Number: US-PFIZER INC-2013293473

PATIENT
  Age: 76 Year
  Sex: Female
  Weight: 53.97 kg

DRUGS (5)
  1. CADUET [Suspect]
     Active Substance: AMLODIPINE BESYLATE\ATORVASTATIN CALCIUM
     Indication: Hypertension
     Dosage: [AMLODIPINE BESILATE 5MG]/ [ATORVASTATIN CALCIUM 20MG], DAILY
     Dates: start: 2006
  2. CADUET [Suspect]
     Active Substance: AMLODIPINE BESYLATE\ATORVASTATIN CALCIUM
     Dosage: UNK
  3. CADUET [Suspect]
     Active Substance: AMLODIPINE BESYLATE\ATORVASTATIN CALCIUM
     Dosage: 1 DF, 1X/DAY (5MG-20MG TABLET ONCE A DAY BY MOUTH, IN THE MORNING)
     Route: 048
  4. PAXIL [Concomitant]
     Active Substance: PAROXETINE HYDROCHLORIDE
     Indication: Nervousness
     Dosage: 20 MG, 2X/DAY
  5. PAXIL [Concomitant]
     Active Substance: PAROXETINE HYDROCHLORIDE
     Indication: Tremor

REACTIONS (6)
  - Heart rate decreased [Unknown]
  - Cataract [Unknown]
  - Influenza [Not Recovered/Not Resolved]
  - Asthenia [Unknown]
  - Nervousness [Unknown]
  - Product dose omission issue [Unknown]

NARRATIVE: CASE EVENT DATE: 20131001
